FAERS Safety Report 7417369-6 (Version None)
Quarter: 2011Q2

REPORT INFORMATION
  Report Type: 
  Country: None (occurrence: None)
  Receive Date: 20110415
  Receipt Date: 20110207
  Transmission Date: 20111010
  Serious: No
  Sender: FDA-Public Use
  Company Number: US-B.I. PHARMACEUTICALS,INC./RIDGEFIELD-2011-BP-04507BP

PATIENT
  Age: 86 Year
  Sex: Male

DRUGS (7)
  1. LUNESTA [Concomitant]
     Indication: INSOMNIA
  2. PRADAXA [Suspect]
     Indication: ATRIAL FIBRILLATION
     Dosage: 300 MG
     Route: 048
     Dates: start: 20101201
  3. FISH OIL [Concomitant]
     Indication: SUPPLEMENTATION THERAPY
  4. AVODART [Concomitant]
     Indication: SUPPLEMENTATION THERAPY
     Dosage: 5 MG
  5. PROTONIX [Concomitant]
     Indication: GASTROOESOPHAGEAL REFLUX DISEASE
  6. BLOOD PRESSURE MED [Concomitant]
     Indication: PROPHYLAXIS
  7. ASPIRIN [Concomitant]
     Indication: BENIGN PROSTATIC HYPERPLASIA
     Dosage: 81 MG

REACTIONS (2)
  - BOWEL MOVEMENT IRREGULARITY [None]
  - DYSPEPSIA [None]
